FAERS Safety Report 12238743 (Version 1)
Quarter: 2016Q2

REPORT INFORMATION
  Report Type: Spontaneous
  Country: US (occurrence: None)
  Receive Date: 20160404
  Receipt Date: 20160404
  Transmission Date: 20160815
  Serious: No
  Sender: FDA-Public Use
  Company Number: None

PATIENT
  Age: 69 Year
  Sex: Male

DRUGS (8)
  1. PRALUENT [Suspect]
     Active Substance: ALIROCUMAB
     Indication: HYPERLIPIDAEMIA
     Dosage: 75 MG EVERY 2 WEEKS SUBCUTANEOUS
     Route: 058
  2. RANITIDINE. [Concomitant]
     Active Substance: RANITIDINE
  3. TRAMADOL. [Concomitant]
     Active Substance: TRAMADOL
  4. METOPROLOL. [Concomitant]
     Active Substance: METOPROLOL
  5. TAMSULOSIN [Concomitant]
     Active Substance: TAMSULOSIN
  6. BRILINTA [Concomitant]
     Active Substance: TICAGRELOR
  7. TESTOSTERONE. [Concomitant]
     Active Substance: TESTOSTERONE
  8. CIALIS [Concomitant]
     Active Substance: TADALAFIL

REACTIONS (4)
  - Gait disturbance [None]
  - Injection site reaction [None]
  - Hypersensitivity [None]
  - Injection site pain [None]

NARRATIVE: CASE EVENT DATE: 20160330
